FAERS Safety Report 22786530 (Version 3)
Quarter: 2024Q1

REPORT INFORMATION
  Report Type: Spontaneous
  Country: JP (occurrence: JP)
  Receive Date: 20230804
  Receipt Date: 20240204
  Transmission Date: 20240410
  Serious: Yes (Death)
  Sender: FDA-Public Use
  Company Number: JP-DSJP-DSJ-2023-131258

PATIENT
  Age: 10 Decade
  Sex: Female

DRUGS (1)
  1. DENOSUMAB [Suspect]
     Active Substance: DENOSUMAB
     Indication: Osteoporosis
     Dosage: 60 MILLIGRAM
     Route: 065

REACTIONS (2)
  - Death [Fatal]
  - Hypocalcaemia [Unknown]

NARRATIVE: CASE EVENT DATE: 20230101
